FAERS Safety Report 4422744-8 (Version None)
Quarter: 2004Q3

REPORT INFORMATION
  Report Type: 
  Country: None (occurrence: None)
  Receive Date: 20040713
  Receipt Date: 20030908
  Transmission Date: 20050211
  Serious: No
  Sender: FDA-Public Use
  Company Number: PHEH2003US07368

PATIENT
  Age: 63 Year
  Sex: Female
  Weight: 69.8 kg

DRUGS (2)
  1. ELIDEL [Suspect]
     Indication: ECZEMA
     Dosage: ONCE TO TWICE DAILY, TOPICAL
     Route: 061
     Dates: start: 20030627, end: 20030720
  2. SIMVASTATIN [Concomitant]

REACTIONS (4)
  - BLISTER [None]
  - PRURITUS [None]
  - RASH [None]
  - SKIN DISCOLOURATION [None]
